FAERS Safety Report 24034543 (Version 1)
Quarter: 2024Q3

REPORT INFORMATION
  Report Type: Spontaneous
  Country: US (occurrence: US)
  Receive Date: 20240701
  Receipt Date: 20240701
  Transmission Date: 20241017
  Serious: Yes (Other)
  Sender: BRISTOL MYERS SQUIBB
  Company Number: US-BRISTOL-MYERS SQUIBB COMPANY-2024-103640

PATIENT
  Age: 67 Year
  Sex: Female
  Weight: 56.5 kg

DRUGS (1)
  1. REVLIMID [Suspect]
     Active Substance: LENALIDOMIDE
     Indication: Plasma cell myeloma
     Dosage: FREQ : MON, WED AND FRIDAY FOR 3 WEEKS ON FOLLOWED BY ONE WEEK OFF
     Route: 048
     Dates: start: 20240314, end: 202406

REACTIONS (2)
  - Drug ineffective [Unknown]
  - Off label use [Unknown]
